FAERS Safety Report 7257919-6 (Version None)
Quarter: 2011Q1

REPORT INFORMATION
  Report Type: 
  Country: None (occurrence: None)
  Receive Date: 20110129
  Receipt Date: 20100607
  Transmission Date: 20110831
  Serious: No
  Sender: FDA-Public Use
  Company Number: US-ABBOTT-10P-163-0649659-00

PATIENT
  Sex: Male
  Weight: 93.07 kg

DRUGS (4)
  1. HUMIRA [Suspect]
     Indication: PSORIATIC ARTHROPATHY
     Route: 058
     Dates: start: 20090101, end: 20100601
  2. LEVOTHYROXINE SODIUM [Concomitant]
     Indication: THYROID DISORDER
  3. EFFEXOR XR [Concomitant]
     Indication: DEPRESSION
  4. HUMIRA [Suspect]
     Route: 058
     Dates: start: 20100601

REACTIONS (3)
  - INJECTION SITE HAEMATOMA [None]
  - INJECTION SITE PAIN [None]
  - PSORIATIC ARTHROPATHY [None]
